FAERS Safety Report 10169179 (Version 4)
Quarter: 2014Q3

REPORT INFORMATION
  Report Type: Spontaneous
  Country: US (occurrence: None)
  Receive Date: 20140509
  Receipt Date: 20140703
  Transmission Date: 20150326
  Serious: Yes (Hospitalization)
  Sender: FDA-Public Use
  Company Number: UTC-048278

PATIENT
  Age: 78 Year
  Sex: Female
  Weight: 65.8 kg

DRUGS (2)
  1. REMODULIN [Suspect]
     Active Substance: TREPROSTINIL
     Indication: PULMONARY ARTERIAL HYPERTENSION
     Dosage: 0.094 UG/KG, CONTINUING, SUBCUTANEOUS
     Route: 058
     Dates: start: 20101011
  2. ADCIRCA [Concomitant]
     Active Substance: TADALAFIL

REACTIONS (3)
  - Dehydration [None]
  - Renal failure acute [None]
  - Renal disorder [None]

NARRATIVE: CASE EVENT DATE: 201404
